FAERS Safety Report 25626866 (Version 1)
Quarter: 2025Q3

REPORT INFORMATION
  Report Type: Spontaneous
  Country: GB (occurrence: GB)
  Receive Date: 20250731
  Receipt Date: 20250731
  Transmission Date: 20251021
  Serious: Yes (Other)
  Sender: MYLAN
  Company Number: None

PATIENT
  Age: 47 Year
  Sex: Female

DRUGS (12)
  1. MIRTAZAPINE [Suspect]
     Active Substance: MIRTAZAPINE
     Indication: Product used for unknown indication
  2. MIRTAZAPINE [Suspect]
     Active Substance: MIRTAZAPINE
  3. MIRTAZAPINE [Suspect]
     Active Substance: MIRTAZAPINE
     Route: 065
  4. MIRTAZAPINE [Suspect]
     Active Substance: MIRTAZAPINE
     Route: 065
  5. MIRTAZAPINE [Suspect]
     Active Substance: MIRTAZAPINE
  6. MIRTAZAPINE [Suspect]
     Active Substance: MIRTAZAPINE
  7. MIRTAZAPINE [Suspect]
     Active Substance: MIRTAZAPINE
     Route: 065
  8. MIRTAZAPINE [Suspect]
     Active Substance: MIRTAZAPINE
     Route: 065
  9. ESTROGEL [Concomitant]
     Active Substance: ESTRADIOL
     Indication: Hormone replacement therapy
  10. ESTROGEL [Concomitant]
     Active Substance: ESTRADIOL
     Route: 065
  11. ESTROGEL [Concomitant]
     Active Substance: ESTRADIOL
     Route: 065
  12. ESTROGEL [Concomitant]
     Active Substance: ESTRADIOL

REACTIONS (1)
  - Hormone level abnormal [Not Recovered/Not Resolved]

NARRATIVE: CASE EVENT DATE: 20240227
